FAERS Safety Report 10387556 (Version 1)
Quarter: 2014Q3

REPORT INFORMATION
  Report Type: Spontaneous
  Country: US (occurrence: None)
  Receive Date: 20140814
  Receipt Date: 20140814
  Transmission Date: 20150326
  Serious: Yes (Disabling)
  Sender: FDA-Public Use
  Company Number: None

PATIENT
  Age: 30 Year
  Sex: Female
  Weight: 49.9 kg

DRUGS (3)
  1. ERYTHROMYCIN. [Concomitant]
     Active Substance: ERYTHROMYCIN
  2. BOTOX [Suspect]
     Active Substance: ONABOTULINUMTOXINA
     Indication: IMPAIRED GASTRIC EMPTYING
     Dosage: 200 UNITS 1 INJECTION (NON-VACCINE) ONE TIME LASTS FOR MONTHS INTO STOMACHE LINING FOR PARALYSIS OF MUSCLE
     Dates: start: 20140621, end: 20140621
  3. NEXIUM [Concomitant]
     Active Substance: ESOMEPRAZOLE MAGNESIUM

REACTIONS (9)
  - Tinnitus [None]
  - Hypoaesthesia [None]
  - Panic disorder [None]
  - Insomnia [None]
  - Suicidal ideation [None]
  - Neurological symptom [None]
  - Blood pressure increased [None]
  - Dyspepsia [None]
  - Heart rate increased [None]

NARRATIVE: CASE EVENT DATE: 20140621
